FAERS Safety Report 11529816 (Version 2)
Quarter: 2015Q4

REPORT INFORMATION
  Report Type: Spontaneous
  Country: JP (occurrence: JP)
  Receive Date: 20150921
  Receipt Date: 20151009
  Transmission Date: 20160304
  Serious: Yes (Hospitalization)
  Sender: FDA-Public Use
  Company Number: JP-GLAXOSMITHKLINE-JP2015JPN133109

PATIENT
  Age: 30 Year
  Sex: Female
  Weight: 71 kg

DRUGS (4)
  1. LAMICTAL [Suspect]
     Active Substance: LAMOTRIGINE
     Dosage: 25 MG, QD
     Route: 048
     Dates: start: 20150901, end: 20150911
  2. LAMICTAL [Suspect]
     Active Substance: LAMOTRIGINE
     Indication: EPILEPSY
     Dosage: 25 MG, QOD
     Route: 048
     Dates: start: 20150818
  3. GABAPEN [Concomitant]
     Active Substance: GABAPENTIN
     Dosage: 400 MG, QD
  4. DEPAKENE [Concomitant]
     Active Substance: VALPROIC ACID
     Dosage: 1000 MG, 1D

REACTIONS (4)
  - Oral pain [Recovered/Resolved]
  - Lymphocytic infiltration [Unknown]
  - Rash generalised [Recovered/Resolved]
  - Gingival pain [Recovered/Resolved]

NARRATIVE: CASE EVENT DATE: 20150911
